FAERS Safety Report 4748630-1 (Version None)
Quarter: 2005Q3

REPORT INFORMATION
  Report Type: 
  Country: None (occurrence: None)
  Receive Date: 20050817
  Receipt Date: 20050803
  Transmission Date: 20060218
  Serious: Yes (Other)
  Sender: FDA-Public Use
  Company Number: US015749

PATIENT
  Age: 38 Year
  Sex: Female

DRUGS (2)
  1. PROVIGIL [Suspect]
     Indication: SOMNOLENCE
     Dosage: 300 MG QAM ORAL
     Route: 048
  2. WELLBUTRIN [Suspect]

REACTIONS (3)
  - AMNESIA [None]
  - DELIRIUM [None]
  - STATUS EPILEPTICUS [None]
